FAERS Safety Report 12951970 (Version 1)
Quarter: 2016Q4

REPORT INFORMATION
  Report Type: Spontaneous
  Country: US (occurrence: US)
  Receive Date: 20161117
  Receipt Date: 20161117
  Transmission Date: 20170207
  Serious: No
  Sender: FDA-Public Use
  Company Number: US-NOVOPROD-502055

PATIENT
  Age: 8 Year
  Sex: Female

DRUGS (1)
  1. NOVOLOG [Suspect]
     Active Substance: INSULIN ASPART
     Indication: TYPE 1 DIABETES MELLITUS
     Route: 058
     Dates: start: 20130805

REACTIONS (3)
  - Product quality issue [Recovered/Resolved]
  - Off label use [Not Recovered/Not Resolved]
  - Diabetes mellitus inadequate control [Recovered/Resolved]
